FAERS Safety Report 21283077 (Version 1)
Quarter: 2022Q3

REPORT INFORMATION
  Report Type: Spontaneous
  Country: US (occurrence: None)
  Receive Date: 20220831
  Receipt Date: 20220831
  Transmission Date: 20221027
  Serious: Yes (Death)
  Sender: FDA-Public Use
  Company Number: None

PATIENT
  Age: 79 Year
  Sex: Male

DRUGS (16)
  1. REPATHA [Suspect]
     Active Substance: EVOLOCUMAB
     Indication: Hypercholesterolaemia
     Dates: start: 20201002
  2. ALPRAZOLAM [Concomitant]
     Active Substance: ALPRAZOLAM
  3. GABAPENTIN [Concomitant]
     Active Substance: GABAPENTIN
  4. ALLOPURINOL [Concomitant]
     Active Substance: ALLOPURINOL
  5. VITAMIN B12 [Concomitant]
     Active Substance: CYANOCOBALAMIN
  6. CALCIUM\VITAMIN D [Concomitant]
     Active Substance: CALCIUM\VITAMIN D
  7. CARVEDILOL [Concomitant]
     Active Substance: CARVEDILOL
  8. donepexil [Concomitant]
  9. ENTRESTO [Concomitant]
     Active Substance: SACUBITRIL\VALSARTAN
  10. FARXIGA [Concomitant]
     Active Substance: DAPAGLIFLOZIN PROPANEDIOL
  11. FIBER THERAPY [Concomitant]
     Active Substance: METHYLCELLULOSE (4000 MPA.S)
  12. FISH OIL [Concomitant]
     Active Substance: FISH OIL
  13. GLIPIZIDE [Concomitant]
     Active Substance: GLIPIZIDE
  14. GLYBURIDE [Concomitant]
     Active Substance: GLYBURIDE
  15. LAMOTRIGINE [Concomitant]
     Active Substance: LAMOTRIGINE
  16. FUROSEMIDE [Concomitant]
     Active Substance: FUROSEMIDE

REACTIONS (1)
  - Death [None]
